FAERS Safety Report 8994487 (Version 1)
Quarter: 2012Q4

REPORT INFORMATION
  Report Type: Spontaneous
  Country: US (occurrence: None)
  Receive Date: 20121228
  Receipt Date: 20121228
  Transmission Date: 20130627
  Serious: Yes (Hospitalization)
  Sender: FDA-Public Use
  Company Number: None

PATIENT
  Sex: Female
  Weight: 12.6 kg

DRUGS (1)
  1. KINERET [Suspect]
     Indication: FEVER
     Dosage: 2.0mg/kg/day daily

REACTIONS (4)
  - Hyperpyrexia [None]
  - Decreased appetite [None]
  - Irritability [None]
  - Rash [None]
